FAERS Safety Report 4682134-X (Version None)
Quarter: 2005Q2

REPORT INFORMATION
  Report Type: 
  Country: None (occurrence: None)
  Receive Date: 20050602
  Receipt Date: 20040730
  Transmission Date: 20051028
  Serious: Yes (Death)
  Sender: FDA-Public Use
  Company Number: 0407-223

PATIENT
  Age: 71 Year
  Sex: Male

DRUGS (6)
  1. DUONEB [Suspect]
     Indication: CHRONIC OBSTRUCTIVE PULMONARY DISEASE
     Dosage: 4 UNIT DOSE
     Dates: start: 20040524, end: 20040605
  2. ZOLOFT [Concomitant]
  3. NITROGLYCERIN [Concomitant]
  4. COREG [Concomitant]
  5. LASIX [Concomitant]
  6. LOVASTATIN [Concomitant]

REACTIONS (1)
  - ABDOMINAL PAIN [None]
